FAERS Safety Report 5501303-X (Version None)
Quarter: 2007Q4

REPORT INFORMATION
  Report Type: 
  Country: None (occurrence: None)
  Receive Date: 20071029
  Receipt Date: 20071026
  Transmission Date: 20080405
  Serious: Yes (Other)
  Sender: FDA-Public Use
  Company Number: US-ALLERGAN-0710401US

PATIENT
  Sex: Female

DRUGS (7)
  1. RESTASIS [Suspect]
     Indication: DRY EYE
     Dosage: 1 GTT, BID
     Route: 047
     Dates: start: 20070908
  2. PLAVIX [Concomitant]
  3. VITAMIN B [Concomitant]
  4. PHENYTOIN [Concomitant]
  5. SERTRALINE [Concomitant]
  6. LOPERAMIDE HCL [Concomitant]
  7. IRON [Concomitant]

REACTIONS (2)
  - PSYCHOMOTOR HYPERACTIVITY [None]
  - VASCULAR DEMENTIA [None]
